FAERS Safety Report 7565379-0 (Version None)
Quarter: 2011Q2

REPORT INFORMATION
  Report Type: 
  Country: None (occurrence: None)
  Receive Date: 20110623
  Receipt Date: 20110615
  Transmission Date: 20111010
  Serious: No
  Sender: FDA-Public Use
  Company Number: US-BIOGENIDEC-2011BI011612

PATIENT
  Sex: Male

DRUGS (2)
  1. BACLOFEN [Concomitant]
     Indication: MUSCLE SPASTICITY
  2. TYSABRI [Suspect]
     Indication: MULTIPLE SCLEROSIS
     Route: 042
     Dates: start: 20090814

REACTIONS (6)
  - DYSPNOEA [None]
  - MUSCLE SPASTICITY [None]
  - MUSCLE SPASMS [None]
  - TEMPERATURE INTOLERANCE [None]
  - GAIT DISTURBANCE [None]
  - OEDEMA PERIPHERAL [None]
